FAERS Safety Report 23508315 (Version 1)
Quarter: 2024Q1

REPORT INFORMATION
  Report Type: Spontaneous
  Country: US (occurrence: US)
  Receive Date: 20240209
  Receipt Date: 20240209
  Transmission Date: 20240410
  Serious: No
  Sender: FDA-Public Use
  Company Number: US-IBSA PHARMA INC.-2023IBS000579

PATIENT

DRUGS (4)
  1. TIROSINT-SOL [Suspect]
     Active Substance: LEVOTHYROXINE SODIUM
     Indication: Thyroid hormone replacement therapy
     Dosage: 200 MICROGRAM, QD
     Route: 048
     Dates: start: 202305
  2. VITAMIN B COMPLEX [Concomitant]
     Active Substance: CYANOCOBALAMIN\DEXPANTHENOL\NIACINAMIDE\PYRIDOXINE HYDROCHLORIDE\RIBOFLAVIN 5^-PHOSPHATE SODIUM\THIA
     Indication: Product used for unknown indication
     Dosage: UNK
  3. ASCORBIC ACID [Concomitant]
     Active Substance: ASCORBIC ACID
     Indication: Product used for unknown indication
     Dosage: UNK
  4. VITAMIN D NOS [Concomitant]
     Active Substance: VITAMIN D NOS
     Indication: Product used for unknown indication
     Dosage: UNK

REACTIONS (8)
  - Brain fog [Not Recovered/Not Resolved]
  - Memory impairment [Not Recovered/Not Resolved]
  - Depressed mood [Not Recovered/Not Resolved]
  - Sleep disorder [Not Recovered/Not Resolved]
  - Product taste abnormal [Unknown]
  - Extra dose administered [Unknown]
  - Product packaging quantity issue [Unknown]
  - Product quality issue [Unknown]

NARRATIVE: CASE EVENT DATE: 20230501
